FAERS Safety Report 10190125 (Version 1)
Quarter: 2014Q2

REPORT INFORMATION
  Report Type: Spontaneous
  Country: BR (occurrence: BR)
  Receive Date: 20140522
  Receipt Date: 20140522
  Transmission Date: 20141212
  Serious: Yes (Other)
  Sender: FDA-Public Use
  Company Number: BR-PFIZER INC-2014136019

PATIENT
  Age: 58 Year
  Sex: Male
  Weight: 74 kg

DRUGS (3)
  1. LIPITOR [Suspect]
     Dosage: UNK
     Route: 048
     Dates: start: 2004
  2. AAS INFANTIL [Concomitant]
     Indication: BLOOD DISORDER
     Dosage: 1 TABLET DAILY
  3. RENITEC [Concomitant]
     Indication: HYPERTENSION
     Dosage: 1 TABLET DAILY

REACTIONS (2)
  - Coronary artery occlusion [Unknown]
  - Cardiac disorder [Unknown]
